FAERS Safety Report 5780350-7 (Version None)
Quarter: 2008Q2

REPORT INFORMATION
  Report Type: 
  Country: None (occurrence: None)
  Receive Date: 20080620
  Receipt Date: 20080610
  Transmission Date: 20081010
  Serious: Yes (Other)
  Sender: FDA-Public Use
  Company Number: B0524613A

PATIENT
  Age: 10 Year

DRUGS (1)
  1. ATRIANCE [Suspect]
     Route: 042

REACTIONS (1)
  - SPINAL CORD DISORDER [None]
